FAERS Safety Report 21442313 (Version 2)
Quarter: 2023Q2

REPORT INFORMATION
  Report Type: Report from Study
  Country: US (occurrence: US)
  Receive Date: 20221011
  Receipt Date: 20230509
  Transmission Date: 20230721
  Serious: Yes (Death, Hospitalization, Other)
  Sender: FDA-Public Use
  Company Number: US-TAKEDA-2022TUS072046

PATIENT
  Age: 86 Year
  Sex: Female

DRUGS (4)
  1. TEDUGLUTIDE [Suspect]
     Active Substance: TEDUGLUTIDE
     Indication: Short-bowel syndrome
     Dosage: 0.20 MILLILITER, QD
     Route: 058
     Dates: start: 20220806, end: 20230503
  2. TEDUGLUTIDE [Suspect]
     Active Substance: TEDUGLUTIDE
     Indication: Short-bowel syndrome
     Dosage: 0.20 MILLILITER, QD
     Route: 058
     Dates: start: 20220806, end: 20230503
  3. TEDUGLUTIDE [Suspect]
     Active Substance: TEDUGLUTIDE
     Indication: Short-bowel syndrome
     Dosage: 0.20 MILLILITER, QD
     Route: 058
     Dates: start: 20220806, end: 20230503
  4. TEDUGLUTIDE [Suspect]
     Active Substance: TEDUGLUTIDE
     Indication: Short-bowel syndrome
     Dosage: 0.20 MILLILITER, QD
     Route: 058
     Dates: start: 20220806, end: 20230503

REACTIONS (4)
  - Death [Fatal]
  - Malaise [Recovered/Resolved]
  - Mental status changes [Unknown]
  - Decubitus ulcer [Unknown]

NARRATIVE: CASE EVENT DATE: 20221002
